FAERS Safety Report 22258340 (Version 1)
Quarter: 2023Q2

REPORT INFORMATION
  Report Type: Report from Study
  Country: ES (occurrence: ES)
  Receive Date: 20230427
  Receipt Date: 20230427
  Transmission Date: 20230722
  Serious: Yes (Death, Other)
  Sender: FDA-Public Use
  Company Number: ES-TAKEDA-2023TUS041072

PATIENT
  Age: 68 Year
  Sex: Male

DRUGS (1)
  1. MARIBAVIR [Suspect]
     Active Substance: MARIBAVIR
     Indication: Cytomegalovirus infection
     Dosage: UNK
     Route: 065

REACTIONS (2)
  - Death [Fatal]
  - Viraemia [Recovered/Resolved]
